FAERS Safety Report 9366407 (Version 2)
Quarter: 2013Q3

REPORT INFORMATION
  Report Type: Spontaneous
  Country: US (occurrence: None)
  Receive Date: 20130620
  Receipt Date: 20130702
  Transmission Date: 20140515
  Serious: Yes (Hospitalization)
  Sender: FDA-Public Use
  Company Number: KV201300107

PATIENT
  Age: 36 Year
  Sex: Female

DRUGS (1)
  1. MAKENA (HYDROXYPROGESTERONE CAPROATE 250 MG/ML) INJECTION, 250 MG/ML [Suspect]
     Indication: PREMATURE DELIVERY
     Route: 030
     Dates: start: 20130412, end: 20130522

REACTIONS (7)
  - Injection site erythema [None]
  - Injection site warmth [None]
  - Injection site swelling [None]
  - Injection site pruritus [None]
  - Nausea [None]
  - Dehydration [None]
  - Vomiting [None]
